FAERS Safety Report 7177515-9 (Version None)
Quarter: 2010Q4

REPORT INFORMATION
  Report Type: 
  Country: None (occurrence: None)
  Receive Date: 20101220
  Receipt Date: 20101216
  Transmission Date: 20110411
  Serious: Yes (Other)
  Sender: FDA-Public Use
  Company Number: US-ABBOTT-10P-163-0692299-00

PATIENT
  Sex: Female
  Weight: 68.1 kg

DRUGS (6)
  1. SYNTHROID [Suspect]
     Indication: HYPOTHYROIDISM
     Dates: start: 20060101
  2. ESTRADIOL [Concomitant]
     Indication: PRODUCT USED FOR UNKNOWN INDICATION
  3. ALIGN [Concomitant]
     Indication: CONSTIPATION
     Dates: start: 20101101
  4. ALIGN [Concomitant]
     Indication: DIARRHOEA
  5. STEROID INJECTIONS [Concomitant]
     Indication: NECK PAIN
     Dates: start: 20101001, end: 20101101
  6. STEROID INJECTIONS [Concomitant]
     Indication: BACK PAIN

REACTIONS (5)
  - CONSTIPATION [None]
  - DIARRHOEA [None]
  - FEELING COLD [None]
  - INTERVERTEBRAL DISC PROTRUSION [None]
  - WEIGHT INCREASED [None]
